FAERS Safety Report 14688337 (Version 5)
Quarter: 2018Q2

REPORT INFORMATION
  Report Type: Spontaneous
  Country: US (occurrence: US)
  Receive Date: 20180328
  Receipt Date: 20180522
  Transmission Date: 20180711
  Serious: Yes (Death, Hospitalization, Other)
  Sender: FDA-Public Use
  Company Number: US-ELI_LILLY_AND_COMPANY-US201803009007

PATIENT
  Age: 25 Year
  Sex: Female
  Weight: 59 kg

DRUGS (6)
  1. UPTRAVI [Suspect]
     Active Substance: SELEXIPAG
     Dosage: 1400 UG, UNKNOWN
     Route: 048
     Dates: start: 20160127
  2. AMBRISENTAN [Suspect]
     Active Substance: AMBRISENTAN
     Indication: PULMONARY HYPERTENSION
     Dosage: 10 MG, DAILY
     Route: 048
     Dates: start: 20170210, end: 20180409
  3. AMBRISENTAN [Suspect]
     Active Substance: AMBRISENTAN
     Indication: PULMONARY HYPERTENSION
     Dosage: 10 MG, DAILY
     Route: 048
     Dates: end: 20180316
  4. ADCIRCA [Suspect]
     Active Substance: TADALAFIL
     Indication: PULMONARY HYPERTENSION
     Dosage: UNK, UNKNOWN
     Route: 005
  5. UPTRAVI [Suspect]
     Active Substance: SELEXIPAG
     Indication: PRODUCT USED FOR UNKNOWN INDICATION
     Dosage: 2200 UG, BID
     Route: 065
  6. UPTRAVI [Suspect]
     Active Substance: SELEXIPAG
     Dosage: 2400 UG, BID
     Route: 065
     Dates: start: 20160127

REACTIONS (13)
  - Right ventricular failure [Fatal]
  - Loss of consciousness [Unknown]
  - Fluid overload [Unknown]
  - Off label use [Unknown]
  - Syncope [Not Recovered/Not Resolved]
  - Weight increased [Unknown]
  - Dizziness [Unknown]
  - Pneumonia [Unknown]
  - Pulmonary embolism [Unknown]
  - Dyspnoea [Not Recovered/Not Resolved]
  - Oedema peripheral [Unknown]
  - Hypotension [Unknown]
  - Fluid retention [Unknown]

NARRATIVE: CASE EVENT DATE: 201804
